FAERS Safety Report 17823195 (Version 1)
Quarter: 2020Q2

REPORT INFORMATION
  Report Type: Spontaneous
  Country: US (occurrence: US)
  Receive Date: 20200525
  Receipt Date: 20200525
  Transmission Date: 20200714
  Serious: Yes (Death)
  Sender: FDA-Public Use
  Company Number: None

PATIENT
  Age: 68 Year
  Sex: Female
  Weight: 76 kg

DRUGS (15)
  1. PERCOCET [Concomitant]
     Active Substance: ACETAMINOPHEN\OXYCODONE HYDROCHLORIDE
     Dates: start: 20200521, end: 20200524
  2. REMDESIVIR. [Suspect]
     Active Substance: REMDESIVIR
     Indication: COVID-19
     Route: 042
     Dates: start: 20200522, end: 20200523
  3. LOVENOX [Concomitant]
     Active Substance: ENOXAPARIN SODIUM
     Dates: start: 20200521, end: 20200524
  4. LOPRESSOR [Concomitant]
     Active Substance: METOPROLOL TARTRATE
     Dates: start: 20200521, end: 20200524
  5. DULERA [Concomitant]
     Active Substance: FORMOTEROL FUMARATE DIHYDRATE\MOMETASONE FUROATE
     Dates: start: 20200520, end: 20200524
  6. ZOSYN [Concomitant]
     Active Substance: PIPERACILLIN SODIUM\TAZOBACTAM SODIUM
     Dates: start: 20200521, end: 20200524
  7. COMBIVENT [Concomitant]
     Active Substance: ALBUTEROL SULFATE\IPRATROPIUM BROMIDE
     Dates: start: 20200520, end: 20200524
  8. AMLODIPINE [Concomitant]
     Active Substance: AMLODIPINE BESYLATE
     Dates: start: 20200521, end: 20200524
  9. GABAPENTIN. [Concomitant]
     Active Substance: GABAPENTIN
     Dates: start: 20200520, end: 20200524
  10. INSULIN LISPRO + INSULIN GLARGINE [Concomitant]
     Dates: start: 20200520, end: 20200524
  11. ALBUTEROL. [Concomitant]
     Active Substance: ALBUTEROL
     Dates: start: 20200520, end: 20200524
  12. PRECEDEX [Concomitant]
     Active Substance: DEXMEDETOMIDINE HYDROCHLORIDE
     Dates: start: 20200521, end: 20200524
  13. SEEBRI [Concomitant]
     Active Substance: GLYCOPYRROLATE
     Dates: start: 20200521, end: 20200524
  14. LEVOTHYROXINE. [Concomitant]
     Active Substance: LEVOTHYROXINE
     Dates: start: 20200521, end: 20200524
  15. ATIVAN [Concomitant]
     Active Substance: LORAZEPAM
     Dates: start: 20200524, end: 20200524

REACTIONS (6)
  - Respiratory distress [None]
  - Respiratory failure [None]
  - Hypoxia [None]
  - Unresponsive to stimuli [None]
  - Encephalopathy [None]
  - Anxiety [None]

NARRATIVE: CASE EVENT DATE: 20200524
